FAERS Safety Report 10228073 (Version 2)
Quarter: 2014Q3

REPORT INFORMATION
  Report Type: Spontaneous
  Country: AT (occurrence: AT)
  Receive Date: 20140610
  Receipt Date: 20140730
  Transmission Date: 20150326
  Serious: Yes (Other)
  Sender: FDA-Public Use
  Company Number: AT-ASTRAZENECA-2014SE38728

PATIENT
  Sex: Female

DRUGS (4)
  1. NAVELBINE [Concomitant]
     Active Substance: VINORELBINE TARTRATE
  2. TAXOTERE [Concomitant]
     Active Substance: DOCETAXEL
  3. 5-FU [Concomitant]
     Active Substance: FLUOROURACIL
  4. FASLODEX [Suspect]
     Active Substance: FULVESTRANT
     Indication: BREAST CANCER
     Dosage: MONTHLY
     Route: 030
     Dates: end: 20140516

REACTIONS (4)
  - Pain [Unknown]
  - Mobility decreased [Unknown]
  - Paraesthesia [Unknown]
  - Feeling cold [Unknown]

NARRATIVE: CASE EVENT DATE: 201402
